FAERS Safety Report 12144229 (Version 3)
Quarter: 2016Q2

REPORT INFORMATION
  Report Type: Spontaneous
  Country: DE (occurrence: DE)
  Receive Date: 20160304
  Receipt Date: 20160409
  Transmission Date: 20160815
  Serious: Yes (Other)
  Sender: FDA-Public Use
  Company Number: DE-AMGEN-DEUSP2016025481

PATIENT
  Age: 64 Year
  Sex: Female
  Weight: 74 kg

DRUGS (4)
  1. PANZYTRAT                          /00014701/ [Concomitant]
     Indication: PANCREATIC INSUFFICIENCY
     Dosage: 25000 UNK, TID
     Route: 048
     Dates: start: 201509, end: 20160403
  2. PROLIA [Suspect]
     Active Substance: DENOSUMAB
     Indication: OSTEOPOROSIS
     Dosage: UNK, Q6MO
     Route: 058
     Dates: start: 201509
  3. KELTICAN                           /00619201/ [Concomitant]
     Indication: POLYNEUROPATHY
     Dosage: UNK UNK, QD
     Route: 048
     Dates: start: 201509, end: 20160403
  4. L THYROXINE [Concomitant]
     Active Substance: LEVOTHYROXINE SODIUM
     Indication: AUTOIMMUNE THYROIDITIS
     Dosage: UNK UNK, QD
     Route: 048
     Dates: start: 2011, end: 20160403

REACTIONS (2)
  - Colitis microscopic [Recovering/Resolving]
  - Diarrhoea [Unknown]

NARRATIVE: CASE EVENT DATE: 201601
